FAERS Safety Report 20818060 (Version 1)
Quarter: 2022Q2

REPORT INFORMATION
  Report Type: Spontaneous
  Country: US (occurrence: US)
  Receive Date: 20220512
  Receipt Date: 20220512
  Transmission Date: 20220721
  Serious: No
  Sender: FDA-Public Use
  Company Number: US-PFIZER INC-202101557304

PATIENT
  Sex: Male

DRUGS (1)
  1. ALPRAZOLAM [Suspect]
     Active Substance: ALPRAZOLAM
     Dosage: 2 MG

REACTIONS (5)
  - Fear [Unknown]
  - Drug ineffective [Unknown]
  - Poor quality product administered [Unknown]
  - Product taste abnormal [Unknown]
  - Product container seal issue [Unknown]
